FAERS Safety Report 23952567 (Version 1)
Quarter: 2024Q2

REPORT INFORMATION
  Report Type: Spontaneous
  Country: US (occurrence: US)
  Receive Date: 20240607
  Receipt Date: 20240607
  Transmission Date: 20240716
  Serious: No
  Sender: FDA-Public Use
  Company Number: US-UPSHER-SMITH LABORATORIES, LLC-2023USL01019

PATIENT
  Age: 50 Year
  Sex: Female

DRUGS (1)
  1. NYAMYC [Suspect]
     Active Substance: NYSTATIN
     Indication: Rash
     Dosage: UNK
     Dates: start: 20231120

REACTIONS (1)
  - Drug ineffective [Unknown]

NARRATIVE: CASE EVENT DATE: 20231120
